FAERS Safety Report 15365496 (Version 1)
Quarter: 2018Q3

REPORT INFORMATION
  Report Type: Spontaneous
  Country: US (occurrence: US)
  Receive Date: 20180910
  Receipt Date: 20180910
  Transmission Date: 20181010
  Serious: Yes (Other)
  Sender: FDA-Public Use
  Company Number: US-AUROBINDO-AUR-APL-2018-044713

PATIENT
  Age: 50 Year
  Sex: Female

DRUGS (4)
  1. SERTRALINE [Suspect]
     Active Substance: SERTRALINE HYDROCHLORIDE
     Indication: PRODUCT USED FOR UNKNOWN INDICATION
     Dosage: 200 MILLIGRAM, DAILY
     Route: 065
  2. CEFTRIAXONE. [Concomitant]
     Active Substance: CEFTRIAXONE
     Indication: PRODUCT USED FOR UNKNOWN INDICATION
     Dosage: 500 MILLIGRAM
     Route: 030
  3. TRAZODONE [Suspect]
     Active Substance: TRAZODONE HYDROCHLORIDE
     Indication: PRODUCT USED FOR UNKNOWN INDICATION
     Dosage: 100 MILLIGRAM AT BEDTIME
     Route: 065
  4. OXYBUTYNIN. [Suspect]
     Active Substance: OXYBUTYNIN CHLORIDE
     Indication: PRODUCT USED FOR UNKNOWN INDICATION
     Dosage: 5 MILLIGRAM, DAILY
     Route: 065

REACTIONS (18)
  - Leukocytosis [Unknown]
  - Dry mouth [Not Recovered/Not Resolved]
  - Pain [Recovered/Resolved]
  - Nervousness [Unknown]
  - Lymphadenopathy [Recovered/Resolved]
  - Somatic dysfunction [Unknown]
  - Hypokinesia [Unknown]
  - Parotitis [Unknown]
  - Malaise [Unknown]
  - Lymphadenitis [Unknown]
  - Clostridium difficile colitis [Recovered/Resolved]
  - Tenderness [Unknown]
  - Anxiety [Unknown]
  - Swelling [Recovered/Resolved]
  - Salivary gland disorder [Unknown]
  - Dysphagia [Unknown]
  - Neck pain [Unknown]
  - Underweight [Unknown]
